FAERS Safety Report 7938255-9 (Version None)
Quarter: 2011Q4

REPORT INFORMATION
  Report Type: 
  Country: None (occurrence: None)
  Receive Date: 20111123
  Receipt Date: 20111122
  Transmission Date: 20120403
  Serious: Yes (Other)
  Sender: FDA-Public Use
  Company Number: CHPA2011US016583

PATIENT
  Age: 80 Year
  Sex: Female

DRUGS (4)
  1. COUMADIN [Concomitant]
     Indication: CARDIAC DISORDER
     Dosage: DAILY (2 MG 5 DAYS AND 1 MG 2 DAYS)
     Route: 048
     Dates: start: 20091101
  2. PREVACID 24 HR [Suspect]
     Indication: ABDOMINAL DISCOMFORT
     Dosage: 15 MG DAILY
     Route: 048
     Dates: start: 20111101, end: 20111114
  3. LISINOPRIL [Concomitant]
     Indication: BLOOD PRESSURE
     Dosage: 5 MG DAILY
     Route: 048
     Dates: start: 20111101, end: 20111111
  4. COZAAR [Concomitant]
     Indication: BLOOD PRESSURE
     Dosage: UNK, QD
     Route: 048
     Dates: start: 20111111

REACTIONS (2)
  - OFF LABEL USE [None]
  - HERPES ZOSTER [None]
